FAERS Safety Report 18245403 (Version 5)
Quarter: 2021Q1

REPORT INFORMATION
  Report Type: Spontaneous
  Country: JP (occurrence: JP)
  Receive Date: 20200908
  Receipt Date: 20210316
  Transmission Date: 20210419
  Serious: Yes (Other)
  Sender: FDA-Public Use
  Company Number: JP-LUNDBECK-DKLU3017677

PATIENT
  Age: 8 Year
  Sex: Female
  Weight: 18 kg

DRUGS (14)
  1. SABRIL [Suspect]
     Active Substance: VIGABATRIN
     Indication: INFANTILE SPASMS
     Route: 048
     Dates: start: 20200212, end: 20200617
  2. TOPIRAMATE. [Concomitant]
     Active Substance: TOPIRAMATE
     Indication: INFANTILE SPASMS
     Route: 065
  3. SABRIL [Suspect]
     Active Substance: VIGABATRIN
     Route: 048
     Dates: start: 20200125, end: 20200128
  4. SABRIL [Suspect]
     Active Substance: VIGABATRIN
     Route: 048
     Dates: start: 20200129, end: 20200131
  5. SABRIL [Suspect]
     Active Substance: VIGABATRIN
     Route: 048
     Dates: start: 20200201, end: 20200211
  6. SABRIL [Suspect]
     Active Substance: VIGABATRIN
     Route: 048
     Dates: start: 20200702, end: 20200715
  7. SABRIL [Suspect]
     Active Substance: VIGABATRIN
     Route: 048
     Dates: start: 20200122, end: 20200124
  8. SABRIL [Suspect]
     Active Substance: VIGABATRIN
     Route: 048
     Dates: start: 20200716, end: 20200730
  9. SABRIL [Suspect]
     Active Substance: VIGABATRIN
     Route: 048
     Dates: start: 20200116, end: 20200121
  10. RUFINAMIDE [Concomitant]
     Active Substance: RUFINAMIDE
     Indication: INFANTILE SPASMS
     Route: 065
  11. SABRIL [Suspect]
     Active Substance: VIGABATRIN
     Route: 048
     Dates: start: 20200618, end: 20200701
  12. SODIUM VALPROATE [Concomitant]
     Active Substance: VALPROATE SODIUM
     Indication: INFANTILE SPASMS
     Route: 065
     Dates: end: 20200617
  13. LEVETIRACETAM. [Concomitant]
     Active Substance: LEVETIRACETAM
     Indication: INFANTILE SPASMS
     Route: 065
     Dates: end: 20200310
  14. PRANLUKAST [Concomitant]
     Active Substance: PRANLUKAST
     Indication: INFANTILE SPASMS
     Route: 065

REACTIONS (4)
  - Nasopharyngitis [Recovered/Resolved]
  - Affect lability [Recovered/Resolved]
  - Retinogram abnormal [Unknown]
  - Retinal deposits [Unknown]

NARRATIVE: CASE EVENT DATE: 20200210
